FAERS Safety Report 22243287 (Version 1)
Quarter: 2023Q2

REPORT INFORMATION
  Report Type: Spontaneous
  Country: BR (occurrence: BR)
  Receive Date: 20230424
  Receipt Date: 20230424
  Transmission Date: 20230721
  Serious: Yes (Other)
  Sender: FDA-Public Use
  Company Number: BR-GLAXOSMITHKLINE-BR2023AMR039491

PATIENT
  Age: 50 Year
  Sex: Male
  Weight: 86 kg

DRUGS (9)
  1. DUTASTERIDE [Suspect]
     Active Substance: DUTASTERIDE
     Indication: Hair growth abnormal
     Dosage: 0.5 MG,  QD
     Route: 065
     Dates: start: 2022, end: 2022
  2. DUTASTERIDE [Suspect]
     Active Substance: DUTASTERIDE
     Indication: Androgenetic alopecia
  3. MINOXIDIL [Suspect]
     Active Substance: MINOXIDIL
     Indication: Loss of libido
     Dosage: 2.5 MG
  4. MINOXIDIL [Suspect]
     Active Substance: MINOXIDIL
     Indication: Erectile dysfunction
  5. FINASTERIDE [Suspect]
     Active Substance: FINASTERIDE
     Indication: Androgenetic alopecia
     Dosage: 1 MG
     Route: 065
  6. UNSPECIFIED INGREDIENT [Suspect]
     Active Substance: UNSPECIFIED INGREDIENT
     Route: 065
  7. anastrozole (Alozex) [Concomitant]
  8. Semple forte [Concomitant]
  9. Sinvarcor [Concomitant]
     Indication: Blood cholesterol

REACTIONS (12)
  - Erectile dysfunction [Not Recovered/Not Resolved]
  - Loss of libido [Unknown]
  - Libido decreased [Not Recovered/Not Resolved]
  - Spermatozoa abnormal [Unknown]
  - Penile size reduced [Unknown]
  - Discouragement [Unknown]
  - Anxiety [Unknown]
  - Ejaculation failure [Unknown]
  - Semen volume decreased [Unknown]
  - Sexual dysfunction [Unknown]
  - Therapy cessation [Unknown]
  - Drug ineffective [Unknown]
